FAERS Safety Report 11801093 (Version 2)
Quarter: 2015Q4

REPORT INFORMATION
  Report Type: Report from Study
  Country: KR (occurrence: KR)
  Receive Date: 20151204
  Receipt Date: 20151210
  Transmission Date: 20160305
  Serious: Yes (Hospitalization)
  Sender: FDA-Public Use
  Company Number: KR-BAYER-2015-475881

PATIENT
  Age: 69 Year
  Sex: Male

DRUGS (6)
  1. NACL [Concomitant]
     Active Substance: SODIUM CHLORIDE
     Indication: HYPONATRAEMIA
     Dosage: 500 ML
  2. LACTULOSE. [Concomitant]
     Active Substance: LACTULOSE
     Indication: DIARRHOEA
  3. DUPHALAC [Concomitant]
     Active Substance: LACTULOSE
     Dosage: UNK
  4. ALBUMIN [Concomitant]
     Active Substance: ALBUMIN (HUMAN)
     Dosage: 100 ML
  5. SORAFENIB (RAF KINASE INHIBITOR) [Suspect]
     Active Substance: SORAFENIB
     Indication: HEPATOCELLULAR CARCINOMA
     Dosage: UNK
     Route: 048
     Dates: start: 20151023, end: 20151108
  6. DUPHALAC [Concomitant]
     Active Substance: LACTULOSE
     Dosage: 200 ML

REACTIONS (1)
  - Hepatic encephalopathy [Recovered/Resolved]

NARRATIVE: CASE EVENT DATE: 20151111
